FAERS Safety Report 11913009 (Version 1)
Quarter: 2016Q1

REPORT INFORMATION
  Report Type: Spontaneous
  Country: US (occurrence: None)
  Receive Date: 20160112
  Receipt Date: 20160112
  Transmission Date: 20160526
  Serious: Yes (Hospitalization)
  Sender: FDA-Public Use
  Company Number: None

PATIENT
  Age: 59 Year
  Sex: Female
  Weight: 48.4 kg

DRUGS (5)
  1. EVEROLIMUS 10MG [Suspect]
     Active Substance: EVEROLIMUS
     Indication: OVARIAN CANCER
     Dosage: DAILY  BID  ORAL
     Route: 048
     Dates: start: 20150619
  2. APIXABAN [Concomitant]
     Active Substance: APIXABAN
  3. LORAZEPAM. [Concomitant]
     Active Substance: LORAZEPAM
  4. VITAMIN B12 [Concomitant]
     Active Substance: CYANOCOBALAMIN
  5. LETROZOL [Concomitant]
     Active Substance: LETROZOLE

REACTIONS (8)
  - Wound secretion [None]
  - Contusion [None]
  - Peripheral swelling [None]
  - Erythema [None]
  - Purulence [None]
  - Pain in extremity [None]
  - Soft tissue swelling [None]
  - Scratch [None]

NARRATIVE: CASE EVENT DATE: 20150930
